FAERS Safety Report 12695940 (Version 7)
Quarter: 2017Q3

REPORT INFORMATION
  Report Type: Spontaneous
  Country: US (occurrence: US)
  Receive Date: 20160829
  Receipt Date: 20170803
  Transmission Date: 20171127
  Serious: No
  Sender: FDA-Public Use
  Company Number: US-ACTELION-A-NJ2016-141283

PATIENT
  Age: 48 Year
  Sex: Female
  Weight: 56.24 kg

DRUGS (5)
  1. OPSUMIT [Suspect]
     Active Substance: MACITENTAN
     Indication: PULMONARY ARTERIAL HYPERTENSION
     Dosage: 10 MG, QD
     Route: 048
     Dates: start: 20140403
  2. ADEMPAS [Suspect]
     Active Substance: RIOCIGUAT
     Dosage: 2.5 MG, AM AND PM
     Route: 065
  3. COUMADIN [Concomitant]
     Active Substance: WARFARIN SODIUM
  4. ADEMPAS [Suspect]
     Active Substance: RIOCIGUAT
     Indication: PULMONARY ARTERIAL HYPERTENSION
     Dosage: 2.0 MG, TID
     Route: 065
  5. ADEMPAS [Suspect]
     Active Substance: RIOCIGUAT
     Dosage: 2.5 MG, TID
     Route: 065

REACTIONS (13)
  - Musculoskeletal chest pain [Unknown]
  - Gallbladder disorder [Unknown]
  - Blood pressure increased [Unknown]
  - Dyspnoea [Unknown]
  - Fatigue [Unknown]
  - Nausea [Unknown]
  - Flushing [Recovering/Resolving]
  - Hypotension [Not Recovered/Not Resolved]
  - Dizziness [Unknown]
  - Heart rate increased [Unknown]
  - Hot flush [Recovering/Resolving]
  - Skin burning sensation [Unknown]
  - Rash [Unknown]
